FAERS Safety Report 8603227-8 (Version None)
Quarter: 2012Q3

REPORT INFORMATION
  Report Type: 
  Country: None (occurrence: None)
  Receive Date: 20120817
  Receipt Date: 20101028
  Transmission Date: 20120928
  Serious: Yes (Other)
  Sender: FDA-Public Use
  Company Number: US-BAYER-200941068NA

PATIENT
  Age: 35 Year
  Sex: Female
  Weight: 60 kg

DRUGS (3)
  1. TEGRETOL [Concomitant]
  2. ACYCLOVIR [Concomitant]
  3. MIRENA [Suspect]
     Indication: CONTRACEPTION
     Dosage: 20 MCG/24HR, CONT
     Route: 015
     Dates: start: 20090115, end: 20101119

REACTIONS (8)
  - NAUSEA [None]
  - AMENORRHOEA [None]
  - INJURY [None]
  - DEVICE DISLOCATION [None]
  - PREGNANCY WITH CONTRACEPTIVE DEVICE [None]
  - MEDICAL DEVICE COMPLICATION [None]
  - PAIN [None]
  - EMOTIONAL DISTRESS [None]
